FAERS Safety Report 20690993 (Version 1)
Quarter: 2022Q2

REPORT INFORMATION
  Report Type: Spontaneous
  Country: US (occurrence: None)
  Receive Date: 20220406
  Receipt Date: 20220406
  Transmission Date: 20220721
  Serious: Yes (Death)
  Sender: FDA-Public Use
  Company Number: None

PATIENT
  Age: 74 Year
  Sex: Male
  Weight: 86.18 kg

DRUGS (17)
  1. TEMOZOLOMIDE [Suspect]
     Active Substance: TEMOZOLOMIDE
     Indication: Brain neoplasm malignant
     Dosage: FREQUENCY : DAILY;?
     Route: 048
  2. ACYCLOVIR [Suspect]
     Active Substance: ACYCLOVIR
  3. CEPHALEXIN [Concomitant]
     Active Substance: CEPHALEXIN
  4. DILTIAZEM [Concomitant]
     Active Substance: DILTIAZEM
  5. DOCUSATE [Concomitant]
     Active Substance: DOCUSATE
  6. DULERA [Concomitant]
     Active Substance: FORMOTEROL FUMARATE DIHYDRATE\MOMETASONE FUROATE
  7. FUROSEMIDE [Concomitant]
     Active Substance: FUROSEMIDE
  8. KEPPRA [Concomitant]
     Active Substance: LEVETIRACETAM
  9. LISINOPRIL [Concomitant]
     Active Substance: LISINOPRIL
  10. METFORMIN [Concomitant]
     Active Substance: METFORMIN HYDROCHLORIDE
  11. METOPROLOL [Concomitant]
     Active Substance: METOPROLOL
  12. POLYETYLENE [Concomitant]
  13. POTASSIUM BICARBONATE [Concomitant]
     Active Substance: POTASSIUM BICARBONATE
  14. PRAVACHOL [Concomitant]
     Active Substance: PRAVASTATIN SODIUM
  15. VASHE [Concomitant]
  16. XARELTO [Concomitant]
     Active Substance: RIVAROXABAN
  17. ZOFRAN [Concomitant]
     Active Substance: ONDANSETRON HYDROCHLORIDE

REACTIONS (1)
  - Death [None]
